FAERS Safety Report 14994773 (Version 3)
Quarter: 2019Q2

REPORT INFORMATION
  Report Type: Spontaneous
  Country: US (occurrence: US)
  Receive Date: 20180611
  Receipt Date: 20190619
  Transmission Date: 20190711
  Serious: No
  Sender: FDA-Public Use
  Company Number: US-PFIZER INC-2018230690

PATIENT
  Age: 77 Year
  Sex: Female

DRUGS (1)
  1. IBRANCE [Suspect]
     Active Substance: PALBOCICLIB
     Dosage: 100 MG, UNK

REACTIONS (9)
  - Eye pruritus [Unknown]
  - Hordeolum [Unknown]
  - Crying [Unknown]
  - Rash [Unknown]
  - Vaginal infection [Unknown]
  - Gastric disorder [Unknown]
  - Stomatitis [Unknown]
  - Hypersensitivity [Unknown]
  - Dry skin [Unknown]
